FAERS Safety Report 19730339 (Version 2)
Quarter: 2022Q1

REPORT INFORMATION
  Report Type: Spontaneous
  Country: US (occurrence: US)
  Receive Date: 20210820
  Receipt Date: 20220215
  Transmission Date: 20220424
  Serious: No
  Sender: FDA-Public Use
  Company Number: US-SA-SAC20210819000069

PATIENT
  Age: 35 Year
  Sex: Male

DRUGS (2)
  1. DUPIXENT [Suspect]
     Active Substance: DUPILUMAB
     Dosage: 300 MG, OTHER
     Route: 058
     Dates: start: 20200930
  2. DUPIXENT [Suspect]
     Active Substance: DUPILUMAB
     Dosage: 600 MG
     Route: 058
     Dates: start: 202108

REACTIONS (3)
  - Rash [Unknown]
  - Dermatitis atopic [Unknown]
  - Product use issue [Unknown]

NARRATIVE: CASE EVENT DATE: 20200930
